FAERS Safety Report 5004587-X (Version None)
Quarter: 2006Q2

REPORT INFORMATION
  Report Type: 
  Country: None (occurrence: None)
  Receive Date: 20060516
  Receipt Date: 20060516
  Transmission Date: 20061013
  Serious: Yes (Life-Threatening, Hospitalization)
  Sender: FDA-Public Use
  Company Number: None

PATIENT
  Age: 75 Year
  Sex: Male
  Weight: 91.9441 kg

DRUGS (1)
  1. BENZOCAINE _HURRICAINE_ 20% 20% SOLUTION [Suspect]
     Indication: DIAGNOSTIC PROCEDURE
     Dates: start: 20051123, end: 20051123

REACTIONS (1)
  - METHAEMOGLOBINAEMIA [None]
